FAERS Safety Report 4519012-2 (Version None)
Quarter: 2004Q4

REPORT INFORMATION
  Report Type: 
  Country: None (occurrence: None)
  Receive Date: 20041203
  Receipt Date: 20041203
  Transmission Date: 20050328
  Serious: Yes (Life-Threatening, Hospitalization)
  Sender: FDA-Public Use
  Company Number: None

PATIENT
  Age: 68 Year
  Sex: Female
  Weight: 75.7507 kg

DRUGS (7)
  1. ACETYLCYSTEINE [Suspect]
     Indication: DIAGNOSTIC PROCEDURE
     Dosage: 3ML  600MG  ONE DOSE ORAL
     Route: 048
     Dates: start: 20041130, end: 20041130
  2. ACETYLCYSTEINE [Suspect]
     Indication: PROPHYLAXIS
     Dosage: 3ML  600MG  ONE DOSE ORAL
     Route: 048
     Dates: start: 20041130, end: 20041130
  3. ACETYLCYSTEINE [Suspect]
     Indication: RENAL IMPAIRMENT
     Dosage: 3ML  600MG  ONE DOSE ORAL
     Route: 048
     Dates: start: 20041130, end: 20041130
  4. ALTACE [Concomitant]
  5. LASIX [Concomitant]
  6. IMDUR [Concomitant]
  7. INSULIN [Concomitant]

REACTIONS (6)
  - BRONCHOSPASM [None]
  - COLD SWEAT [None]
  - COMA [None]
  - DYSPNOEA [None]
  - HYPOTENSION [None]
  - OXYGEN SATURATION DECREASED [None]
